FAERS Safety Report 4680005-6 (Version None)
Quarter: 2005Q2

REPORT INFORMATION
  Report Type: 
  Country: None (occurrence: None)
  Receive Date: 20050602
  Receipt Date: 20050527
  Transmission Date: 20051028
  Serious: Yes (Other)
  Sender: FDA-Public Use
  Company Number: US-GLAXOSMITHKLINE-A0560408A

PATIENT
  Age: 71 Year
  Sex: Male

DRUGS (2)
  1. WELLBUTRIN [Suspect]
     Indication: SMOKING CESSATION THERAPY
     Dosage: 300MG PER DAY
     Route: 048
     Dates: start: 20050301, end: 20050401
  2. NO CONCURRENT MEDICATION [Concomitant]

REACTIONS (3)
  - DISTURBANCE IN SEXUAL AROUSAL [None]
  - LOSS OF LIBIDO [None]
  - PROSTATE CANCER [None]
